FAERS Safety Report 15363039 (Version 8)
Quarter: 2022Q3

REPORT INFORMATION
  Report Type: Report from Study
  Country: PA (occurrence: PA)
  Receive Date: 20180907
  Receipt Date: 20220729
  Transmission Date: 20221026
  Serious: Yes (Hospitalization, Disabling, Other)
  Sender: FDA-Public Use
  Company Number: PHHY2017PA060984

PATIENT
  Age: 34 Year
  Sex: Female

DRUGS (7)
  1. GILENYA [Suspect]
     Active Substance: FINGOLIMOD HYDROCHLORIDE
     Indication: Multiple sclerosis
     Dosage: UNK
     Route: 065
     Dates: start: 2012, end: 2013
  2. GILENYA [Suspect]
     Active Substance: FINGOLIMOD HYDROCHLORIDE
     Dosage: UNK
     Route: 065
     Dates: start: 201406
  3. GILENYA [Suspect]
     Active Substance: FINGOLIMOD HYDROCHLORIDE
     Dosage: 0.5 MG, QD
     Route: 048
     Dates: start: 20140812
  4. GILENYA [Suspect]
     Active Substance: FINGOLIMOD HYDROCHLORIDE
     Dosage: 1 DF, QOD
     Route: 065
     Dates: start: 201703
  5. GILENYA [Suspect]
     Active Substance: FINGOLIMOD HYDROCHLORIDE
     Dosage: 1 DF, QD
     Route: 065
  6. GILENYA [Suspect]
     Active Substance: FINGOLIMOD HYDROCHLORIDE
     Dosage: 0.5 MG
     Route: 065
     Dates: start: 20180423
  7. FLUOXETINE [Suspect]
     Active Substance: FLUOXETINE HYDROCHLORIDE
     Indication: Product used for unknown indication
     Dosage: 3 DF, QD
     Route: 065

REACTIONS (53)
  - Multiple sclerosis relapse [Not Recovered/Not Resolved]
  - Hemiplegia [Not Recovered/Not Resolved]
  - Monoparesis [Unknown]
  - Gait inability [Recovering/Resolving]
  - Fatigue [Recovering/Resolving]
  - Paralysis [Recovering/Resolving]
  - Hypokinesia [Recovered/Resolved]
  - Muscular weakness [Unknown]
  - Balance disorder [Unknown]
  - Embolism [Unknown]
  - Hemiparesis [Unknown]
  - Malaise [Unknown]
  - Sleep disorder [Unknown]
  - Pain [Recovered/Resolved]
  - Blepharospasm [Recovered/Resolved]
  - Burning sensation [Recovered/Resolved]
  - Dysstasia [Recovered/Resolved]
  - Hypoaesthesia [Recovering/Resolving]
  - Chromaturia [Recovering/Resolving]
  - Haematuria [Recovering/Resolving]
  - Nitrite urine present [Recovering/Resolving]
  - Bacterial test positive [Recovering/Resolving]
  - Blood glucose increased [Recovering/Resolving]
  - Blood creatinine increased [Recovering/Resolving]
  - Haemoglobin decreased [Recovering/Resolving]
  - Mean cell volume decreased [Recovering/Resolving]
  - Mean cell haemoglobin concentration decreased [Recovering/Resolving]
  - Platelet count increased [Recovering/Resolving]
  - Neutrophil percentage increased [Recovering/Resolving]
  - Monocyte percentage increased [Recovering/Resolving]
  - Basophil percentage increased [Recovering/Resolving]
  - International normalised ratio decreased [Recovering/Resolving]
  - Mean platelet volume decreased [Recovering/Resolving]
  - Hypochromic anaemia [Recovering/Resolving]
  - Thrombocytosis [Recovering/Resolving]
  - Red blood cells urine positive [Recovering/Resolving]
  - White blood cells urine positive [Recovering/Resolving]
  - Urinary sediment present [Recovering/Resolving]
  - Ankle fracture [Unknown]
  - Urinary incontinence [Unknown]
  - Weight decreased [Unknown]
  - Renal disorder [Unknown]
  - Mobility decreased [Unknown]
  - Tongue ulceration [Unknown]
  - Hypersensitivity [Unknown]
  - Influenza [Unknown]
  - Pyrexia [Unknown]
  - Nasopharyngitis [Unknown]
  - Dizziness [Unknown]
  - Lymphopenia [Recovering/Resolving]
  - Urinary tract infection [Unknown]
  - Arthralgia [Not Recovered/Not Resolved]
  - Inappropriate schedule of product administration [Unknown]

NARRATIVE: CASE EVENT DATE: 20131201
